FAERS Safety Report 7794963-4 (Version None)
Quarter: 2011Q3

REPORT INFORMATION
  Report Type: 
  Country: None (occurrence: None)
  Receive Date: 20110930
  Receipt Date: 20110923
  Transmission Date: 20111222
  Serious: Yes (Other)
  Sender: FDA-Public Use
  Company Number: GER/UKI/11/0021329

PATIENT
  Sex: Male

DRUGS (8)
  1. DOMPERIDONE (DOMPERIDONE) [Concomitant]
  2. ONDANSETRON [Concomitant]
  3. PREDNISOLONE [Concomitant]
  4. QUININE SULPHATE (QUININE SULFATE) [Concomitant]
  5. OMEPRAZOLE [Suspect]
     Indication: PRODUCT USED FOR UNKNOWN INDICATION
     Dosage: 20 MG, 1 IN 1 D, ORAL
     Route: 048
  6. MIRTAZAPINE [Suspect]
     Indication: PRODUCT USED FOR UNKNOWN INDICATION
     Dosage: 15 MG, 1 IN 1 D, ORAL
     Route: 048
  7. ACETAMINOPHEN [Concomitant]
  8. AMITRIPTYLINE HCL [Suspect]
     Indication: PRODUCT USED FOR UNKNOWN INDICATION
     Dosage: 20 MG, 1 IN 1 D, ORAL
     Route: 048

REACTIONS (2)
  - URINE SODIUM DECREASED [None]
  - BLOOD SODIUM DECREASED [None]
